FAERS Safety Report 6757456-9 (Version None)
Quarter: 2010Q2

REPORT INFORMATION
  Report Type: 
  Country: None (occurrence: None)
  Receive Date: 20100607
  Receipt Date: 20100525
  Transmission Date: 20101027
  Serious: No
  Sender: FDA-Public Use
  Company Number: US-BIOGENIDEC-2010BI017194

PATIENT
  Age: 54 Year
  Sex: Female

DRUGS (1)
  1. AVONEX [Suspect]
     Indication: MULTIPLE SCLEROSIS
     Route: 030
     Dates: start: 20090901

REACTIONS (9)
  - ABNORMAL SENSATION IN EYE [None]
  - EYE PAIN [None]
  - EYE SWELLING [None]
  - FATIGUE [None]
  - HEADACHE [None]
  - HERPES ZOSTER [None]
  - HERPES ZOSTER OPHTHALMIC [None]
  - SENSORY DISTURBANCE [None]
  - STRESS [None]
